FAERS Safety Report 20326979 (Version 3)
Quarter: 2023Q1

REPORT INFORMATION
  Report Type: Other
  Country: US (occurrence: None)
  Receive Date: 20220112
  Receipt Date: 20230109
  Transmission Date: 20230417
  Serious: Yes (Hospitalization)
  Sender: FDA-Public Use
  Company Number: US-ROCHE-2999527

PATIENT
  Sex: Male

DRUGS (24)
  1. COTELLIC [Suspect]
     Active Substance: COBIMETINIB
     Indication: Malignant melanoma
     Route: 065
  2. COTELLIC [Suspect]
     Active Substance: COBIMETINIB
     Indication: Brain neoplasm malignant
  3. COTELLIC [Suspect]
     Active Substance: COBIMETINIB
     Indication: Sinus arrest
  4. COTELLIC [Suspect]
     Active Substance: COBIMETINIB
     Indication: Lung neoplasm malignant
  5. COTELLIC [Suspect]
     Active Substance: COBIMETINIB
     Indication: Metastasis
  6. COTELLIC [Suspect]
     Active Substance: COBIMETINIB
     Indication: Neovascular age-related macular degeneration
  7. COTELLIC [Suspect]
     Active Substance: COBIMETINIB
     Indication: Traumatic fracture
  8. COTELLIC [Suspect]
     Active Substance: COBIMETINIB
     Indication: Fall
  9. COTELLIC [Suspect]
     Active Substance: COBIMETINIB
     Indication: Hypothyroidism
  10. ZELBORAF [Suspect]
     Active Substance: VEMURAFENIB
     Indication: Malignant melanoma
     Dosage: TAKE 3 TABLET(S) BY MOUTH DAILY FOR 21 DAYS ON, 7 DAYS OFF. BEGIN THURSDAY.
     Route: 048
  11. ZELBORAF [Suspect]
     Active Substance: VEMURAFENIB
     Indication: Brain neoplasm malignant
     Dosage: TAKE 4 TABLET(S) BY MOUTH EVERY 12 HOURS
     Route: 048
  12. ZELBORAF [Suspect]
     Active Substance: VEMURAFENIB
     Indication: Sinus arrest
  13. ZELBORAF [Suspect]
     Active Substance: VEMURAFENIB
     Indication: Lung neoplasm malignant
  14. ZELBORAF [Suspect]
     Active Substance: VEMURAFENIB
     Indication: Metastasis
  15. ZELBORAF [Suspect]
     Active Substance: VEMURAFENIB
     Indication: Neovascular age-related macular degeneration
  16. ZELBORAF [Suspect]
     Active Substance: VEMURAFENIB
     Indication: Traumatic fracture
  17. ZELBORAF [Suspect]
     Active Substance: VEMURAFENIB
     Indication: Fall
  18. ZELBORAF [Suspect]
     Active Substance: VEMURAFENIB
     Indication: Hypothyroidism
  19. OXYBUTYNIN [Concomitant]
     Active Substance: OXYBUTYNIN
  20. TYLENOL [Concomitant]
     Active Substance: ACETAMINOPHEN
  21. PRAVASTATIN [Concomitant]
     Active Substance: PRAVASTATIN
  22. LASIX [Concomitant]
     Active Substance: FUROSEMIDE
  23. AMLODIPINE [Concomitant]
     Active Substance: AMLODIPINE BESYLATE
  24. ALLOPURINOL [Concomitant]
     Active Substance: ALLOPURINOL

REACTIONS (3)
  - Haematological infection [Unknown]
  - Heart rate irregular [Unknown]
  - Nausea [Unknown]
